FAERS Safety Report 21075316 (Version 3)
Quarter: 2023Q1

REPORT INFORMATION
  Report Type: Spontaneous
  Country: US (occurrence: None)
  Receive Date: 20220713
  Receipt Date: 20230317
  Transmission Date: 20230418
  Serious: Yes (Hospitalization)
  Sender: FDA-Public Use
  Company Number: US-ROCHE-3135392

PATIENT
  Age: 78 Year
  Sex: Male

DRUGS (1)
  1. ESBRIET [Suspect]
     Active Substance: PIRFENIDONE
     Indication: Idiopathic pulmonary fibrosis
     Route: 048
     Dates: start: 20220525

REACTIONS (5)
  - Pneumonia [Not Recovered/Not Resolved]
  - Tachycardia [Unknown]
  - Nausea [Unknown]
  - Cold sweat [Unknown]
  - Fatigue [Unknown]

NARRATIVE: CASE EVENT DATE: 20220706
